FAERS Safety Report 9776340 (Version 3)
Quarter: 2014Q1

REPORT INFORMATION
  Report Type: Report from Study
  Country: US (occurrence: US)
  Receive Date: 20131220
  Receipt Date: 20140117
  Transmission Date: 20141002
  Serious: Yes (Hospitalization)
  Sender: FDA-Public Use
  Company Number: US-US-EMD SERONO, INC.-7257953

PATIENT
  Sex: Male

DRUGS (1)
  1. REBIF [Suspect]
     Indication: PRODUCT USED FOR UNKNOWN INDICATION
     Route: 058
     Dates: start: 20101228

REACTIONS (8)
  - Limb injury [Unknown]
  - Localised infection [Unknown]
  - Skin ulcer [Unknown]
  - Fall [Unknown]
  - Dizziness [Unknown]
  - Unevaluable event [Unknown]
  - Muscular weakness [Unknown]
  - Disease progression [Unknown]
